FAERS Safety Report 7118802-X (Version None)
Quarter: 2010Q4

REPORT INFORMATION
  Report Type: 
  Country: None (occurrence: None)
  Receive Date: 20101123
  Receipt Date: 20101021
  Transmission Date: 20110411
  Serious: No
  Sender: FDA-Public Use
  Company Number: US-KINGPHARMUSA00001-K201001321

PATIENT
  Sex: Female

DRUGS (1)
  1. FLECTOR [Suspect]
     Indication: JOINT SPRAIN
     Dosage: UNK PATCH UNK
     Route: 061

REACTIONS (4)
  - APPLICATION SITE ERYTHEMA [None]
  - DERMATITIS CONTACT [None]
  - OEDEMA PERIPHERAL [None]
  - PAIN IN EXTREMITY [None]
